FAERS Safety Report 13420750 (Version 7)
Quarter: 2020Q1

REPORT INFORMATION
  Report Type: Spontaneous
  Country: JP (occurrence: JP)
  Receive Date: 20170409
  Receipt Date: 20200115
  Transmission Date: 20200409
  Serious: Yes (Other)
  Sender: FDA-Public Use
  Company Number: JP-AMGEN-JPNSP2017053651

PATIENT
  Age: 71 Year
  Sex: Female
  Weight: 41 kg

DRUGS (3)
  1. DENOTAS [Concomitant]
     Active Substance: CALCIUM CARBONATE\CHOLECALCIFEROL\MAGNESIUM CARBONATE
     Dosage: 3 DOSAGE FORM, QD
     Route: 048
     Dates: start: 20150622
  2. CELECOX [Concomitant]
     Active Substance: CELECOXIB
     Dosage: 100 MILLIGRAM, BID
     Route: 048
     Dates: start: 20151204
  3. PRALIA [Suspect]
     Active Substance: DENOSUMAB
     Indication: OSTEOPOROSIS
     Dosage: 60 MILLIGRAM, Q6MO, 5 TIMES
     Route: 058
     Dates: start: 20141222, end: 20161209

REACTIONS (3)
  - Osteonecrosis of jaw [Recovered/Resolved]
  - Osteonecrosis of external auditory canal [Not Recovered/Not Resolved]
  - Osteonecrosis of external auditory canal [Not Recovered/Not Resolved]

NARRATIVE: CASE EVENT DATE: 20150310
